FAERS Safety Report 11732655 (Version 1)
Quarter: 2015Q4

REPORT INFORMATION
  Report Type: Report from Study
  Country: US (occurrence: US)
  Receive Date: 20151113
  Receipt Date: 20151113
  Transmission Date: 20160304
  Serious: Yes (Other)
  Sender: FDA-Public Use
  Company Number: US-ROCHE-1648185

PATIENT
  Age: 66 Year
  Sex: Male
  Weight: 69.01 kg

DRUGS (11)
  1. BENADRYL [Concomitant]
     Active Substance: DIPHENHYDRAMINE HYDROCHLORIDE
     Route: 065
  2. ESBRIET [Suspect]
     Active Substance: PIRFENIDONE
     Dosage: 3 CAPSULES, THREE TIMES PER DAY
     Route: 048
     Dates: start: 20151030
  3. ESBRIET [Suspect]
     Active Substance: PIRFENIDONE
     Dosage: 2 CAPSULES, THREE TIMES PER DAY
     Route: 048
  4. HYDROCHLOROTHIAZIDE. [Concomitant]
     Active Substance: HYDROCHLOROTHIAZIDE
     Indication: BLOOD PRESSURE MEASUREMENT
     Route: 048
     Dates: start: 201508
  5. IBUPROFEN. [Concomitant]
     Active Substance: IBUPROFEN
     Route: 048
  6. ESBRIET [Suspect]
     Active Substance: PIRFENIDONE
     Indication: IDIOPATHIC PULMONARY FIBROSIS
     Dosage: TAKES THREE 267MG, THREE TIMES A DAY, TOTAL 2403MG
     Route: 048
     Dates: start: 20150806
  7. PROTONIX (UNITED STATES) [Concomitant]
     Indication: GASTROOESOPHAGEAL REFLUX DISEASE
     Dosage: 40MG TABLET, ONCE IN MORNING, ONCE AT NIGHT
     Route: 065
  8. HYDROCHLOROTHIAZIDE. [Concomitant]
     Active Substance: HYDROCHLOROTHIAZIDE
     Indication: HYPERTENSION
  9. PANTOPRAZOLE [Concomitant]
     Active Substance: PANTOPRAZOLE SODIUM
     Indication: GASTROOESOPHAGEAL REFLUX DISEASE
     Route: 048
     Dates: start: 201504
  10. PREDNISONE. [Concomitant]
     Active Substance: PREDNISONE
     Dosage: 2 PILLS FOR FIVE DAYS
     Route: 065
     Dates: start: 20151021, end: 20151025
  11. PREDNISONE. [Concomitant]
     Active Substance: PREDNISONE
     Route: 065
     Dates: start: 20151026, end: 20151031

REACTIONS (11)
  - Ageusia [Recovering/Resolving]
  - Cough [Not Recovered/Not Resolved]
  - Weight decreased [Recovering/Resolving]
  - Decreased appetite [Not Recovered/Not Resolved]
  - Lethargy [Recovering/Resolving]
  - Dysgeusia [Not Recovered/Not Resolved]
  - Chest discomfort [Recovered/Resolved with Sequelae]
  - Abdominal discomfort [Recovering/Resolving]
  - Drug hypersensitivity [Not Recovered/Not Resolved]
  - Fatigue [Recovering/Resolving]
  - Rash [Recovering/Resolving]

NARRATIVE: CASE EVENT DATE: 20150820
